FAERS Safety Report 20593860 (Version 1)
Quarter: 2022Q1

REPORT INFORMATION
  Report Type: Spontaneous
  Country: DK (occurrence: DK)
  Receive Date: 20220315
  Receipt Date: 20220315
  Transmission Date: 20220423
  Serious: Yes (Hospitalization, Other)
  Sender: FDA-Public Use
  Company Number: None

PATIENT
  Age: 25 Year
  Sex: Male

DRUGS (2)
  1. SOTROVIMAB [Suspect]
     Active Substance: SOTROVIMAB
     Indication: COVID-19
     Dosage: 500 MG, TOTAL (STRENGTH: 500 MG/TOTAL)
     Route: 042
     Dates: start: 20211001, end: 20211001
  2. NPLATE [Concomitant]
     Active Substance: ROMIPLOSTIM
     Indication: Immune thrombocytopenia
     Dosage: UNK (START DATE UNKNOWN BUT AT LEAST SINCE 23JAN2020)
     Route: 065
     Dates: start: 20200123

REACTIONS (2)
  - Portal vein thrombosis [Recovering/Resolving]
  - Abdominal pain [Unknown]

NARRATIVE: CASE EVENT DATE: 20211001
